FAERS Safety Report 15565183 (Version 2)
Quarter: 2018Q4

REPORT INFORMATION
  Report Type: Spontaneous
  Country: US (occurrence: US)
  Receive Date: 20181030
  Receipt Date: 20181212
  Transmission Date: 20190205
  Serious: Yes (Hospitalization)
  Sender: FDA-Public Use
  Company Number: US-HORIZON-PRO-0199-2018

PATIENT
  Age: 12 Year
  Sex: Female

DRUGS (10)
  1. G-LEVOCARNITINE [Concomitant]
  2. PRILOSEC [Concomitant]
     Active Substance: OMEPRAZOLE MAGNESIUM
  3. SPIRONOLACTONE. [Concomitant]
     Active Substance: SPIRONOLACTONE
  4. LACTULOSE. [Concomitant]
     Active Substance: LACTULOSE
  5. CYSTAGON [Concomitant]
     Active Substance: CYSTEAMINE BITARTRATE
  6. VITAMIN D3 [Concomitant]
     Active Substance: CHOLECALCIFEROL
  7. RENVELA [Concomitant]
     Active Substance: SEVELAMER CARBONATE
  8. PROCYSBI [Suspect]
     Active Substance: CYSTEAMINE BITARTRATE
     Indication: AMINO ACID METABOLISM DISORDER
     Dosage: 750 MG EVERY 12 HOURS
     Route: 048
  9. CALCITRIOL. [Concomitant]
     Active Substance: CALCITRIOL
  10. ZOFRAN [Concomitant]
     Active Substance: ONDANSETRON HYDROCHLORIDE

REACTIONS (2)
  - Fluid overload [Not Recovered/Not Resolved]
  - Mitral valve incompetence [Not Recovered/Not Resolved]
